FAERS Safety Report 6318100-8 (Version None)
Quarter: 2009Q3

REPORT INFORMATION
  Report Type: 
  Country: None (occurrence: None)
  Receive Date: 20090821
  Receipt Date: 20090814
  Transmission Date: 20100115
  Serious: Yes (Other)
  Sender: FDA-Public Use
  Company Number: GB-JNJFOC-20090804996

PATIENT
  Sex: Female

DRUGS (2)
  1. INFLIXIMAB [Suspect]
     Dosage: INFUSION 5
     Route: 042
  2. INFLIXIMAB [Suspect]
     Indication: SWEAT GLAND INFECTION
     Dosage: INFUSION 1-4 ON UNSPECIFIED DATES
     Route: 042

REACTIONS (4)
  - HYPOTENSION [None]
  - INFUSION RELATED REACTION [None]
  - NAUSEA [None]
  - VOMITING [None]
